FAERS Safety Report 6192131-3 (Version None)
Quarter: 2009Q2

REPORT INFORMATION
  Report Type: 
  Country: None (occurrence: None)
  Receive Date: 20090515
  Receipt Date: 20090507
  Transmission Date: 20091009
  Serious: Yes (Other)
  Sender: FDA-Public Use
  Company Number: US-PFIZER INC-2009209708

PATIENT
  Sex: Female
  Weight: 73.028 kg

DRUGS (7)
  1. CELEBREX [Interacting]
     Indication: MIGRAINE
     Dates: start: 20090101, end: 20090101
  2. LYRICA [Suspect]
     Indication: COMPLEX REGIONAL PAIN SYNDROME
     Dosage: 75 MG, 2X/DAY
  3. LYRICA [Suspect]
     Indication: MIGRAINE
  4. DILANTIN [Concomitant]
     Dosage: UNK
  5. KLONOPIN [Concomitant]
     Dosage: UNK
  6. ZOLOFT [Concomitant]
     Dosage: UNK
  7. TRIAMTERENE [Concomitant]
     Dosage: UNK

REACTIONS (2)
  - DISORIENTATION [None]
  - SOMNOLENCE [None]
